FAERS Safety Report 19089782 (Version 2)
Quarter: 2021Q2

REPORT INFORMATION
  Report Type: Spontaneous
  Country: US (occurrence: US)
  Receive Date: 20210403
  Receipt Date: 20210625
  Transmission Date: 20210717
  Serious: Yes (Life-Threatening, Hospitalization)
  Sender: FDA-Public Use
  Company Number: US-TEVA-2021-US-1895826

PATIENT
  Age: 59 Year
  Sex: Female

DRUGS (1)
  1. OCTREOTIDE. [Suspect]
     Active Substance: OCTREOTIDE
     Indication: CARCINOID CRISIS
     Dosage: 12000 MICROGRAM DAILY;
     Route: 050

REACTIONS (3)
  - Cardiogenic shock [Recovered/Resolved]
  - Heart injury [Recovered/Resolved]
  - Arteriospasm coronary [Recovered/Resolved]
